FAERS Safety Report 9633266 (Version 18)
Quarter: 2015Q3

REPORT INFORMATION
  Report Type: Report from Study
  Country: CA (occurrence: CA)
  Receive Date: 20131021
  Receipt Date: 20150810
  Transmission Date: 20151125
  Serious: Yes (Death, Other)
  Sender: FDA-Public Use
  Company Number: PHHY2010CA46976

PATIENT
  Age: 81 Year
  Sex: Female

DRUGS (3)
  1. SANDOSTATIN LAR DEPOT [Suspect]
     Active Substance: OCTREOTIDE ACETATE
     Dosage: 20 MG, QMO ONCE A MONTH
     Route: 030
     Dates: start: 20140113, end: 20150703
  2. NOSTRIL [Concomitant]
     Indication: PRODUCT USED FOR UNKNOWN INDICATION
     Route: 065
  3. SANDOSTATIN LAR DEPOT [Suspect]
     Active Substance: OCTREOTIDE ACETATE
     Indication: ACROMEGALY
     Dosage: 10 MG, QMO
     Route: 030
     Dates: start: 20100603

REACTIONS (24)
  - Epistaxis [Not Recovered/Not Resolved]
  - Hypersensitivity [Unknown]
  - Incorrect dose administered [Unknown]
  - Nasal obstruction [Unknown]
  - Nasal polyps [Unknown]
  - Contusion [Not Recovered/Not Resolved]
  - Pharyngeal oedema [Fatal]
  - Heart rate decreased [Unknown]
  - Injection site movement impairment [Unknown]
  - Vomiting [Unknown]
  - Injection site pain [Unknown]
  - Blood cortisol decreased [Unknown]
  - Heart rate irregular [Unknown]
  - Abdominal discomfort [Unknown]
  - Nasal cavity cancer [Recovering/Resolving]
  - Fall [Unknown]
  - Lymphadenopathy [Unknown]
  - Dysphonia [Not Recovered/Not Resolved]
  - Local swelling [Not Recovered/Not Resolved]
  - Faeces soft [Not Recovered/Not Resolved]
  - Blood pressure increased [Unknown]
  - Oropharyngeal pain [Not Recovered/Not Resolved]
  - Eye contusion [Unknown]
  - Nausea [Unknown]

NARRATIVE: CASE EVENT DATE: 20100712
